FAERS Safety Report 4915833-2 (Version None)
Quarter: 2006Q1

REPORT INFORMATION
  Report Type: 
  Country: None (occurrence: None)
  Receive Date: 20060217
  Receipt Date: 20051006
  Transmission Date: 20060701
  Serious: Yes (Other)
  Sender: FDA-Public Use
  Company Number: GBWYE034906OCT05

PATIENT
  Sex: Female

DRUGS (5)
  1. ENBREL [Suspect]
     Indication: RHEUMATOID ARTHRITIS
     Dosage: UNKNOWN
     Route: 058
     Dates: start: 20041101, end: 20050901
  2. MELOXICAM [Concomitant]
     Dates: start: 19980101
  3. PREDNISOLONE [Concomitant]
     Dates: start: 19970101
  4. PLAQUENIL [Concomitant]
     Dates: start: 20010101
  5. PRILOSEC [Concomitant]
     Dates: start: 20010101

REACTIONS (2)
  - GASTROINTESTINAL CARCINOMA [None]
  - HEPATIC NEOPLASM MALIGNANT [None]
